FAERS Safety Report 22661414 (Version 1)
Quarter: 2023Q2

REPORT INFORMATION
  Report Type: Spontaneous
  Country: DE (occurrence: DE)
  Receive Date: 20230630
  Receipt Date: 20230630
  Transmission Date: 20230721
  Serious: No
  Sender: FDA-Public Use
  Company Number: DE-JAZZ PHARMACEUTICALS-2022-DE-034847

PATIENT
  Age: 8 Year
  Sex: Female

DRUGS (3)
  1. CANNABIDIOL [Suspect]
     Active Substance: CANNABIDIOL
     Indication: Petit mal epilepsy
     Dosage: UNK
  2. CANNABIDIOL [Suspect]
     Active Substance: CANNABIDIOL
     Indication: Myoclonic epilepsy
  3. CLOBAZAM [Concomitant]
     Active Substance: CLOBAZAM

REACTIONS (1)
  - Off label use [Unknown]
